FAERS Safety Report 7344733-6 (Version None)
Quarter: 2011Q1

REPORT INFORMATION
  Report Type: 
  Country: None (occurrence: None)
  Receive Date: 20110310
  Receipt Date: 20110307
  Transmission Date: 20110831
  Serious: Yes (Death, Other)
  Sender: FDA-Public Use
  Company Number: PHHY2010US77328

PATIENT
  Sex: Female

DRUGS (2)
  1. PREDNISONE [Concomitant]
  2. GLEEVEC [Suspect]
     Indication: ACUTE LYMPHOCYTIC LEUKAEMIA
     Dosage: 450 MG, DAILY
     Route: 048
     Dates: start: 20101008

REACTIONS (4)
  - URINARY TRACT INFECTION [None]
  - NEOPLASM MALIGNANT [None]
  - RENAL CYST [None]
  - BLAST CELL CRISIS [None]
